FAERS Safety Report 9502558 (Version 1)
Quarter: 2013Q3

REPORT INFORMATION
  Report Type: Spontaneous
  Country: US (occurrence: US)
  Receive Date: 20130906
  Receipt Date: 20130906
  Transmission Date: 20140515
  Serious: Yes (Hospitalization)
  Sender: FDA-Public Use
  Company Number: US-BAYER-2013-107194

PATIENT
  Age: 39 Year
  Sex: Female

DRUGS (6)
  1. OCELLA [Suspect]
  2. YASMIN [Suspect]
  3. AMITRIPTYLINE [Concomitant]
     Dosage: 37.5 MG, DAILY
     Route: 048
     Dates: start: 20120724
  4. DULCOLAX PICOSULFAT [Concomitant]
     Dosage: 100 MG, DAILY
     Dates: start: 20120724
  5. OMEPRAZOLE [Concomitant]
     Dosage: 20 MG, TWICE DAILY
     Route: 048
     Dates: start: 20120724
  6. PHILLIP^S COLON HEALTH [Concomitant]
     Dosage: 1 DAILY AS NEEDED
     Route: 048
     Dates: start: 20120724

REACTIONS (2)
  - Deep vein thrombosis [None]
  - Pulmonary embolism [Recovered/Resolved]
